FAERS Safety Report 21054355 (Version 6)
Quarter: 2022Q3

REPORT INFORMATION
  Report Type: Spontaneous
  Country: US (occurrence: US)
  Receive Date: 20220707
  Receipt Date: 20220715
  Transmission Date: 20221027
  Serious: No
  Sender: FDA-Public Use
  Company Number: US-PFIZER INC-202200920122

PATIENT
  Age: 44 Year
  Sex: Female
  Weight: 63.5 kg

DRUGS (11)
  1. PREMARIN [Suspect]
     Active Substance: ESTROGENS, CONJUGATED
     Indication: Oestrogen therapy
     Dosage: 1.25 MG, DAILY
  2. PREMARIN [Suspect]
     Active Substance: ESTROGENS, CONJUGATED
     Indication: Hot flush
     Dosage: 0.625 MG, 2X/DAY (2 TABLETS OF THE 0.625MG TABLET, DAILY)
  3. PREMARIN [Suspect]
     Active Substance: ESTROGENS, CONJUGATED
     Indication: Night sweats
  4. VYVANSE [Concomitant]
     Active Substance: LISDEXAMFETAMINE DIMESYLATE
     Dosage: 20 MG
  5. LEVOXYL [Concomitant]
     Active Substance: LEVOTHYROXINE SODIUM
     Dosage: 25 MG
  6. TRINTELLIX [Concomitant]
     Active Substance: VORTIOXETINE HYDROBROMIDE
     Dosage: 5 MG
  7. ZOFRAN [Concomitant]
     Active Substance: ONDANSETRON HYDROCHLORIDE
     Dosage: 8 MG
  8. UBRELVY [Concomitant]
     Active Substance: UBROGEPANT
     Dosage: 100 MG
  9. BYSTOLIC [Concomitant]
     Active Substance: NEBIVOLOL HYDROCHLORIDE
     Dosage: 10 MG
  10. ZYPITAMAG [Concomitant]
     Active Substance: PITAVASTATIN
     Dosage: 4 MG
  11. XOLAIR [Concomitant]
     Active Substance: OMALIZUMAB
     Indication: Eczema
     Dosage: UNK, CYCLIC (150 PREFILLED SYRINGE, EVERY 20 DAYS)

REACTIONS (3)
  - Pain [Unknown]
  - Intentional product misuse [Unknown]
  - Product prescribing error [Unknown]
